FAERS Safety Report 20933507 (Version 1)
Quarter: 2022Q2

REPORT INFORMATION
  Report Type: Spontaneous
  Country: US (occurrence: None)
  Receive Date: 20220607
  Receipt Date: 20220607
  Transmission Date: 20220721
  Serious: Yes (Hospitalization)
  Sender: FDA-Public Use
  Company Number: None

PATIENT
  Age: 43 Year
  Sex: Female

DRUGS (2)
  1. CAPECITABINE [Suspect]
     Active Substance: CAPECITABINE
     Indication: Spinal disorder
     Dosage: FREQUENCY : TWICE A DAY;?
     Route: 048
     Dates: start: 202203
  2. CAPECITABINE [Suspect]
     Active Substance: CAPECITABINE
     Indication: Ankylosing spondylitis

REACTIONS (2)
  - Oophorectomy [None]
  - Therapy interrupted [None]

NARRATIVE: CASE EVENT DATE: 20220510
